FAERS Safety Report 5399461-3 (Version None)
Quarter: 2007Q3

REPORT INFORMATION
  Report Type: 
  Country: None (occurrence: None)
  Receive Date: 20070727
  Receipt Date: 20070725
  Transmission Date: 20080115
  Serious: Yes (Other)
  Sender: FDA-Public Use
  Company Number: US-SHR-US-2007-025964

PATIENT
  Age: 23 Year
  Sex: Female
  Weight: 47 kg

DRUGS (5)
  1. MIRENA [Suspect]
     Dosage: 20 A?G/DAY, CONT
     Route: 015
     Dates: start: 20070530, end: 20070629
  2. ENALAPRIL MALEATE [Concomitant]
     Dosage: 10 MG, UNK
  3. LEXAPRO [Concomitant]
     Dosage: 20 MG, UNK
  4. MAGNESIUM SULFATE [Concomitant]
  5. IRON [Concomitant]
     Dosage: UNK, UNK

REACTIONS (5)
  - BLINDNESS TRANSIENT [None]
  - IRRITABILITY [None]
  - IUD MIGRATION [None]
  - PAIN [None]
  - PROCEDURAL PAIN [None]
